FAERS Safety Report 4294936-2 (Version None)
Quarter: 2004Q1

REPORT INFORMATION
  Report Type: 
  Country: None (occurrence: None)
  Receive Date: 20040216
  Receipt Date: 20030306
  Transmission Date: 20041129
  Serious: No
  Sender: FDA-Public Use
  Company Number: US-GLAXOSMITHKLINE-A0399274A

PATIENT
  Age: 50 Year
  Sex: Female

DRUGS (5)
  1. LAMICTAL [Suspect]
     Indication: BIPOLAR II DISORDER
     Dosage: 350MG PER DAY
     Route: 048
  2. EFFEXOR [Concomitant]
  3. NEURONTIN [Concomitant]
  4. AMBIEN [Concomitant]
  5. LITHIUM CARBONATE [Concomitant]

REACTIONS (1)
  - MOUTH ULCERATION [None]
